FAERS Safety Report 8461465-1 (Version None)
Quarter: 2012Q2

REPORT INFORMATION
  Report Type: 
  Country: None (occurrence: None)
  Receive Date: 20120625
  Receipt Date: 20120615
  Transmission Date: 20120825
  Serious: Yes (Hospitalization)
  Sender: FDA-Public Use
  Company Number: US-US-EMD SERONO, INC.-7138588

PATIENT
  Sex: Female

DRUGS (6)
  1. MIRAPEX [Concomitant]
     Indication: PRODUCT USED FOR UNKNOWN INDICATION
  2. INSULIN PUMP [Concomitant]
     Indication: TYPE 1 DIABETES MELLITUS
  3. LEXAPRO [Concomitant]
     Indication: PRODUCT USED FOR UNKNOWN INDICATION
  4. REBIF [Suspect]
     Indication: MULTIPLE SCLEROSIS
     Route: 058
     Dates: start: 20090901
  5. REBIF [Suspect]
     Route: 058
     Dates: start: 20100628
  6. CHEMOTHERAPY [Concomitant]
     Indication: BREAST CANCER

REACTIONS (4)
  - INJECTION SITE ERYTHEMA [None]
  - FULL BLOOD COUNT DECREASED [None]
  - BLOOD GLUCOSE FLUCTUATION [None]
  - CHEST PAIN [None]
